FAERS Safety Report 15412613 (Version 2)
Quarter: 2018Q4

REPORT INFORMATION
  Report Type: Spontaneous
  Country: JP (occurrence: JP)
  Receive Date: 20180921
  Receipt Date: 20181002
  Transmission Date: 20190204
  Serious: Yes (Hospitalization)
  Sender: FDA-Public Use
  Company Number: JP-LPDUSPRD-20181742

PATIENT
  Age: 52 Year
  Sex: Female
  Weight: 68 kg

DRUGS (7)
  1. ROCURONIUM [Concomitant]
     Active Substance: ROCURONIUM BROMIDE
     Dosage: UNKNOWN
     Route: 065
     Dates: start: 20180420, end: 20180420
  2. INDIGO CARMINE [Suspect]
     Active Substance: INDIGOTINDISULFONATE SODIUM
     Dosage: 5 ML, QD
     Route: 058
     Dates: start: 20180420, end: 20180420
  3. SEVOFRANE [Concomitant]
     Active Substance: SEVOFLURANE
     Dosage: UNKNOWN
     Route: 065
     Dates: start: 20180420, end: 20180420
  4. XYLOCAINE WITH EPINEPHRINE [Concomitant]
     Active Substance: EPINEPHRINE BITARTRATE\LIDOCAINE HYDROCHLORIDE
     Dosage: UNKNOWN
     Route: 065
     Dates: start: 20180420, end: 20180420
  5. ULTIVA [Concomitant]
     Active Substance: REMIFENTANIL HYDROCHLORIDE
     Dosage: UNKNOWN
     Route: 065
     Dates: start: 20180420, end: 20180420
  6. NEO SYNESIN [Concomitant]
     Active Substance: PHENYLEPHRINE HYDROCHLORIDE
     Dosage: UNKNOWN
     Route: 065
     Dates: start: 20180420, end: 20180420
  7. SEISHOKU [Concomitant]
     Active Substance: SODIUM CHLORIDE
     Dosage: UNKNOWN
     Route: 051
     Dates: start: 20180420, end: 20180420

REACTIONS (2)
  - Infusion site necrosis [Recovered/Resolved]
  - Postoperative wound infection [Recovered/Resolved]

NARRATIVE: CASE EVENT DATE: 20180420
